FAERS Safety Report 7821403-9 (Version None)
Quarter: 2011Q4

REPORT INFORMATION
  Report Type: 
  Country: None (occurrence: None)
  Receive Date: 20111018
  Receipt Date: 20111006
  Transmission Date: 20120403
  Serious: Yes (Disabling, Other)
  Sender: FDA-Public Use
  Company Number: FR-ACTELION-A-CH2009-31697

PATIENT
  Sex: Male
  Weight: 76.4 kg

DRUGS (1)
  1. ZAVESCA [Suspect]
     Indication: GAUCHER'S DISEASE
     Dosage: 100 MG, TID
     Route: 048
     Dates: start: 20090923, end: 20100715

REACTIONS (19)
  - NECK PAIN [None]
  - THERAPEUTIC RESPONSE DECREASED [None]
  - ABDOMINAL PAIN [None]
  - PAIN IN EXTREMITY [None]
  - DRY SKIN [None]
  - BONE INFARCTION [None]
  - ARTHRALGIA [None]
  - SPEECH DISORDER [None]
  - SCAB [None]
  - BONE PAIN [None]
  - OSTEOLYSIS [None]
  - INTERVERTEBRAL DISC PROTRUSION [None]
  - TREMOR [None]
  - CONCOMITANT DISEASE AGGRAVATED [None]
  - DIARRHOEA [None]
  - HEADACHE [None]
  - BACK PAIN [None]
  - BONE LESION [None]
  - HYPOAESTHESIA [None]
